FAERS Safety Report 9036329 (Version 1)
Quarter: 2013Q1

REPORT INFORMATION
  Report Type: Spontaneous
  Country: US (occurrence: None)
  Receive Date: 20130117
  Receipt Date: 20130117
  Transmission Date: 20140127
  Serious: Yes (Other)
  Sender: FDA-Public Use
  Company Number: None

PATIENT
  Age: 40 Year
  Sex: Female
  Weight: 68.04 kg

DRUGS (1)
  1. AZELASTINE [Suspect]
     Dosage: 2 SPRAYS PER NOSTRIL, 2 TIMES A DAY, NASAL
     Route: 045
     Dates: start: 20130103, end: 20130116

REACTIONS (4)
  - Product substitution issue [None]
  - Device failure [None]
  - Incorrect dose administered [None]
  - Product quality issue [None]
